FAERS Safety Report 8914529 (Version 5)
Quarter: 2013Q3

REPORT INFORMATION
  Report Type: Report from Study
  Country: DE (occurrence: DE)
  Receive Date: 20121116
  Receipt Date: 20130703
  Transmission Date: 20140515
  Serious: Yes (Hospitalization, Other)
  Sender: FDA-Public Use
  Company Number: DE-ABBOTT-12P-062-1008283-00

PATIENT
  Age: 79 Year
  Sex: Male

DRUGS (3)
  1. TRENANTONE [Suspect]
     Indication: PROSTATE CANCER
     Route: 058
     Dates: start: 20111208
  2. JEVTANA [Concomitant]
     Indication: PRODUCT USED FOR UNKNOWN INDICATION
  3. FILGRASTIM [Concomitant]
     Indication: PRODUCT USED FOR UNKNOWN INDICATION

REACTIONS (2)
  - Prostate cancer [Unknown]
  - Myocardial infarction [Recovered/Resolved]
